FAERS Safety Report 5338123-5 (Version None)
Quarter: 2007Q2

REPORT INFORMATION
  Report Type: 
  Country: None (occurrence: None)
  Receive Date: 20070530
  Receipt Date: 20070528
  Transmission Date: 20071010
  Serious: Yes (Death)
  Sender: FDA-Public Use
  Company Number: PHBS2007JP08639

PATIENT
  Age: 39 Year
  Sex: Male

DRUGS (2)
  1. ASPIRIN [Suspect]
  2. VOLTAREN [Suspect]
     Dosage: 25 MG/DAY
     Route: 048
     Dates: start: 20011201, end: 20011201

REACTIONS (2)
  - ANALGESIC ASTHMA SYNDROME [None]
  - STATUS ASTHMATICUS [None]
